FAERS Safety Report 7104918-0 (Version None)
Quarter: 2010Q4

REPORT INFORMATION
  Report Type: 
  Country: None (occurrence: None)
  Receive Date: 20101109
  Receipt Date: 20101028
  Transmission Date: 20110411
  Serious: Yes (Other)
  Sender: FDA-Public Use
  Company Number: 2010AP001957

PATIENT
  Age: 49 Year
  Sex: Female

DRUGS (7)
  1. AMISULPRIDE (AMISULPRIDE) [Suspect]
     Indication: SCHIZOPHRENIA
     Dosage: PO
     Route: 048
     Dates: start: 20100801
  2. LAMOTRIGINE [Suspect]
     Indication: CONVULSION
     Dates: start: 20100801
  3. CLOZARIL [Suspect]
     Indication: SCHIZOPHRENIA
     Dosage: 600 MG; PO
     Route: 048
     Dates: start: 20100207
  4. CLOZAPINE [Concomitant]
  5. PAROXETINE HCL [Concomitant]
  6. RAMIPRIL [Concomitant]
  7. TEMAZEPAM [Concomitant]

REACTIONS (7)
  - ABSCESS [None]
  - BREAST ABSCESS [None]
  - BREAST CANCER FEMALE [None]
  - MENTAL IMPAIRMENT [None]
  - METASTASES TO SPINE [None]
  - PLATELET COUNT DECREASED [None]
  - WHITE BLOOD CELL COUNT INCREASED [None]
